FAERS Safety Report 9022575 (Version 1)
Quarter: 2013Q1

REPORT INFORMATION
  Report Type: Spontaneous
  Country: US (occurrence: US)
  Receive Date: 20130118
  Receipt Date: 20130118
  Transmission Date: 20140127
  Serious: No
  Sender: FDA-Public Use
  Company Number: US-GLAXOSMITHKLINE-A0987444A

PATIENT
  Age: 57 Year
  Sex: Female

DRUGS (6)
  1. PROMACTA [Suspect]
     Dosage: 50MG PER DAY
     Route: 048
     Dates: start: 20120201
  2. VITAMIN B COMPLEX [Concomitant]
  3. CALCIUM [Concomitant]
  4. LOVASTATIN [Concomitant]
  5. PREDNISONE [Concomitant]
  6. HUMALOG MIX [Concomitant]

REACTIONS (1)
  - Skin discolouration [Unknown]
